FAERS Safety Report 10870074 (Version 2)
Quarter: 2015Q1

REPORT INFORMATION
  Report Type: Spontaneous
  Country: US (occurrence: None)
  Receive Date: 20150223
  Receipt Date: 20150323
  Transmission Date: 20150721
  Serious: Yes (Life-Threatening, Hospitalization, Other)
  Sender: FDA-Public Use
  Company Number: DE-IBIGEN-2014.00607

PATIENT
  Age: 39 Year
  Sex: Male

DRUGS (4)
  1. SEVOFLURANE. [Concomitant]
     Active Substance: SEVOFLURANE
  2. PIPERACILLIN/TAZOBACTAM [Suspect]
     Active Substance: PIPERACILLIN SODIUM\TAZOBACTAM SODIUM
  3. AMPICILLIN SULBACTAM [Suspect]
     Active Substance: AMPICILLIN SODIUM\SULBACTAM SODIUM
     Indication: ANTIBIOTIC PROPHYLAXIS
     Route: 040
  4. FENTANYL. [Concomitant]
     Active Substance: FENTANYL

REACTIONS (5)
  - Peritonitis [None]
  - Rectal perforation [None]
  - Blood pressure decreased [None]
  - Pneumothorax [None]
  - Eosinophilic pneumonia acute [None]

NARRATIVE: CASE EVENT DATE: 2013
